FAERS Safety Report 7274317-X (Version None)
Quarter: 2011Q1

REPORT INFORMATION
  Report Type: 
  Country: None (occurrence: None)
  Receive Date: 20110131
  Receipt Date: 20110131
  Transmission Date: 20110831
  Serious: No
  Sender: FDA-Public Use
  Company Number: None

PATIENT
  Age: 62 Year
  Sex: Female
  Weight: 56.6996 kg

DRUGS (1)
  1. TRAZODONE HCL [Suspect]
     Indication: SLEEP DISORDER
     Dosage: 150MG ONCE NIGHTLY PO
     Route: 048
     Dates: start: 20101022, end: 20101122

REACTIONS (4)
  - HEADACHE [None]
  - DIZZINESS [None]
  - DEPRESSION [None]
  - PRODUCT SUBSTITUTION ISSUE [None]
